FAERS Safety Report 7124091-2 (Version None)
Quarter: 2010Q4

REPORT INFORMATION
  Report Type: 
  Country: None (occurrence: None)
  Receive Date: 20101126
  Receipt Date: 20101116
  Transmission Date: 20110411
  Serious: Yes (Hospitalization)
  Sender: FDA-Public Use
  Company Number: PHHO2010DE16174

PATIENT
  Sex: Female

DRUGS (6)
  1. CERTICAN [Suspect]
     Indication: RENAL TRANSPLANT
     Dosage: 5 MG, BID
     Route: 048
     Dates: start: 20100902
  2. MYFORTIC [Suspect]
     Indication: RENAL TRANSPLANT
     Dosage: UNK
     Route: 048
     Dates: start: 20100713, end: 20101025
  3. MYFORTIC [Suspect]
     Dosage: 360 MG, BID
     Route: 048
     Dates: start: 20101108, end: 20101111
  4. VALCYTE [Suspect]
     Indication: CYTOMEGALOVIRUS INFECTION
     Dosage: 450 MG / DAY
     Dates: start: 20100802
  5. SANDIMMUNE [Concomitant]
     Dosage: 110 MG, BID
     Dates: start: 20100713, end: 20100902
  6. SIMULECT [Concomitant]

REACTIONS (3)
  - DIARRHOEA [None]
  - PANCYTOPENIA [None]
  - PYREXIA [None]
